FAERS Safety Report 10079915 (Version 2)
Quarter: 2014Q2

REPORT INFORMATION
  Report Type: Spontaneous
  Country: US (occurrence: US)
  Receive Date: 20140415
  Receipt Date: 20140415
  Transmission Date: 20141212
  Serious: Yes (Hospitalization, Other)
  Sender: FDA-Public Use
  Company Number: US-JNJFOC-20140311177

PATIENT
  Age: 74 Year
  Sex: Female
  Weight: 48.9 kg

DRUGS (7)
  1. XARELTO [Suspect]
     Indication: DEEP VEIN THROMBOSIS
     Route: 048
     Dates: start: 20140210
  2. XARELTO [Suspect]
     Indication: DEEP VEIN THROMBOSIS
     Route: 048
     Dates: start: 20140127, end: 20140210
  3. FENTANYL [Concomitant]
     Indication: CANCER PAIN
     Route: 065
  4. OXYCODONE [Concomitant]
     Indication: BREAKTHROUGH PAIN
     Route: 048
  5. FLONASE [Concomitant]
     Route: 045
  6. ALPRAZOLAM [Concomitant]
     Route: 048
  7. CHEMO MEDICATION [Concomitant]
     Indication: NEOPLASM MALIGNANT
     Route: 065

REACTIONS (9)
  - Haematochezia [Recovered/Resolved]
  - International normalised ratio increased [Unknown]
  - Prothrombin time prolonged [Unknown]
  - Blood alkaline phosphatase increased [Unknown]
  - Blood bilirubin increased [Unknown]
  - Blood lactate dehydrogenase increased [Unknown]
  - Pulmonary mass [Unknown]
  - Blood albumin decreased [Unknown]
  - Aspartate aminotransferase increased [Unknown]
